FAERS Safety Report 5939438-X (Version None)
Quarter: 2008Q4

REPORT INFORMATION
  Report Type: 
  Country: None (occurrence: None)
  Receive Date: 20081029
  Receipt Date: 20080909
  Transmission Date: 20090506
  Serious: Yes (Death)
  Sender: FDA-Public Use
  Company Number: 19622

PATIENT
  Sex: Male

DRUGS (7)
  1. PACLITAXEL [Suspect]
     Indication: NEOPLASM
     Dosage: 175 MG/M2 PER_CYCLE OTHER
     Route: 050
  2. ETOPOSIDE [Suspect]
     Indication: NEOPLASM
     Dosage: 100 MG/M2 PER_CYCLE
  3. CISPLATIN [Suspect]
     Indication: NEOPLASM
     Dosage: 20 MG/M2 PER_CYCLE
  4. BLEOMYCIN SULFATE [Suspect]
     Indication: NEOPLASM
     Dosage: 30 MG/M2 PER_CYCLE
  5. DEXAMETHASON. MFR: NOT SPECIFIED [Concomitant]
  6. BISULEPIN HCL [Concomitant]
  7. RANITIDINE [Concomitant]

REACTIONS (7)
  - BONE MARROW FAILURE [None]
  - FEBRILE NEUTROPENIA [None]
  - GRANULOCYTOPENIA [None]
  - MEGACOLON [None]
  - RESPIRATORY FAILURE [None]
  - SEPSIS [None]
  - SEPTIC SHOCK [None]
